FAERS Safety Report 5554619-5 (Version None)
Quarter: 2007Q4

REPORT INFORMATION
  Report Type: 
  Country: None (occurrence: None)
  Receive Date: 20071213
  Receipt Date: 20071205
  Transmission Date: 20080405
  Serious: Yes (Other)
  Sender: FDA-Public Use
  Company Number: US-GENENTECH-252554

PATIENT
  Sex: Male

DRUGS (3)
  1. AVASTIN [Suspect]
     Indication: GLIOMA
     Dosage: UNK, Q2W
     Route: 042
     Dates: start: 20070301
  2. CPT-11 [Concomitant]
     Indication: GLIOMA
  3. STEROIDS NOS [Concomitant]
     Indication: DRUG USE FOR UNKNOWN INDICATION

REACTIONS (3)
  - BLINDNESS [None]
  - CONFUSIONAL STATE [None]
  - MYDRIASIS [None]
